FAERS Safety Report 4354572-6 (Version None)
Quarter: 2004Q2

REPORT INFORMATION
  Report Type: 
  Country: None (occurrence: None)
  Receive Date: 20040503
  Receipt Date: 20040422
  Transmission Date: 20050107
  Serious: Yes (Life-Threatening, Hospitalization, Other)
  Sender: FDA-Public Use
  Company Number: 2004-01720

PATIENT
  Age: 31 Year
  Sex: Male

DRUGS (3)
  1. FERRLECIT [Suspect]
     Indication: IRON DEFICIENCY ANAEMIA
     Dosage: 500 MG/250 ML NS OVER 45 MIN, INTRAVENOUS
     Route: 042
     Dates: start: 20040421, end: 20040421
  2. EPOGEN [Concomitant]
  3. TUMS (CALCIUM CARBONATE) [Concomitant]

REACTIONS (5)
  - ANAPHYLACTIC REACTION [None]
  - INFUSION RELATED REACTION [None]
  - MEDICATION ERROR [None]
  - MUSCLE SPASMS [None]
  - OVERDOSE [None]
